FAERS Safety Report 11897559 (Version 1)
Quarter: 2016Q1

REPORT INFORMATION
  Report Type: Spontaneous
  Country: US (occurrence: US)
  Receive Date: 20160108
  Receipt Date: 20160108
  Transmission Date: 20160526
  Serious: No
  Sender: FDA-Public Use
  Company Number: US-ASTRAZENECA-2016SE00514

PATIENT
  Age: 26146 Day
  Sex: Female

DRUGS (4)
  1. LYNPARZA [Suspect]
     Active Substance: OLAPARIB
     Indication: LYMPHOMA
     Dosage: TOOK ALL PILLS ONCE TODAY,TOTALLING 800MG
     Route: 048
     Dates: start: 20160101
  2. LYNPARZA [Suspect]
     Active Substance: OLAPARIB
     Indication: CERVIX CARCINOMA
     Dosage: TOOK ALL PILLS ONCE TODAY,TOTALLING 800MG
     Route: 048
     Dates: start: 20160101
  3. LYNPARZA [Suspect]
     Active Substance: OLAPARIB
     Indication: CERVIX CARCINOMA
     Route: 048
     Dates: start: 20160101
  4. LYNPARZA [Suspect]
     Active Substance: OLAPARIB
     Indication: LYMPHOMA
     Route: 048
     Dates: start: 20160101

REACTIONS (2)
  - Product use issue [Unknown]
  - Drug abuse [Unknown]

NARRATIVE: CASE EVENT DATE: 20160101
